FAERS Safety Report 10365392 (Version 2)
Quarter: 2014Q3

REPORT INFORMATION
  Report Type: Report from Study
  Country: IE (occurrence: IE)
  Receive Date: 20140806
  Receipt Date: 20140806
  Transmission Date: 20150326
  Serious: Yes (Death, Other)
  Sender: FDA-Public Use
  Company Number: IE-BAYER-2014-073138

PATIENT
  Age: 49 Year
  Sex: Male

DRUGS (1)
  1. NEXAVAR [Suspect]
     Active Substance: SORAFENIB
     Indication: HEPATOCELLULAR CARCINOMA
     Dosage: 400 MG, BID
     Route: 048
     Dates: start: 20140404, end: 20140515

REACTIONS (4)
  - Diarrhoea [None]
  - Hepatocellular carcinoma [Fatal]
  - Fall [None]
  - Muscular weakness [None]

NARRATIVE: CASE EVENT DATE: 201404
